FAERS Safety Report 23810301 (Version 1)
Quarter: 2024Q2

REPORT INFORMATION
  Report Type: Spontaneous
  Country: CA (occurrence: CA)
  Receive Date: 20240502
  Receipt Date: 20240502
  Transmission Date: 20240715
  Serious: Yes (Hospitalization)
  Sender: FDA-Public Use
  Company Number: CA-TEVA-VS-3192536

PATIENT
  Age: 44 Year
  Sex: Male

DRUGS (12)
  1. QUETIAPINE FUMARATE [Suspect]
     Active Substance: QUETIAPINE FUMARATE
     Indication: Mental disorder
     Dosage: QUETIAPINE FUMARATE
     Route: 065
  2. CITALOPRAM HYDROBROMIDE [Suspect]
     Active Substance: CITALOPRAM HYDROBROMIDE
     Indication: Mental disorder
     Dosage: CITALOPRAM HYDROBROMIDE
     Route: 065
  3. BUPROPION [Suspect]
     Active Substance: BUPROPION
     Indication: Mental disorder
     Route: 065
  4. CLONAZEPAM [Suspect]
     Active Substance: CLONAZEPAM
     Indication: Mental disorder
     Route: 065
  5. RISPERIDONE [Suspect]
     Active Substance: RISPERIDONE
     Indication: Mental disorder
     Route: 065
  6. ATAZANAVIR\RITONAVIR [Concomitant]
     Active Substance: ATAZANAVIR\RITONAVIR
     Indication: HIV infection
     Route: 065
  7. EFAVIRENZ [Suspect]
     Active Substance: EFAVIRENZ
     Indication: Product used for unknown indication
     Route: 065
  8. EMTRICITABINE [Concomitant]
     Active Substance: EMTRICITABINE
     Indication: HIV infection
     Route: 065
  9. ENFUVIRTIDE [Concomitant]
     Active Substance: ENFUVIRTIDE
     Indication: HIV infection
     Route: 065
  10. RALTEGRAVIR [Suspect]
     Active Substance: RALTEGRAVIR
     Indication: HIV infection
     Route: 065
  11. TENOFOVIR [Concomitant]
     Active Substance: TENOFOVIR
     Indication: HIV infection
     Route: 065
  12. ISENTRESS [Suspect]
     Active Substance: RALTEGRAVIR POTASSIUM
     Indication: HIV infection
     Route: 065

REACTIONS (2)
  - Depression [Unknown]
  - Drug interaction [Unknown]
